FAERS Safety Report 24357215 (Version 2)
Quarter: 2024Q3

REPORT INFORMATION
  Report Type: Spontaneous
  Country: US (occurrence: US)
  Receive Date: 20240924
  Receipt Date: 20240925
  Transmission Date: 20241017
  Serious: Yes (Hospitalization)
  Sender: PFIZER
  Company Number: US-PFIZER INC-PV202400122496

PATIENT
  Age: 67 Year
  Sex: Male

DRUGS (3)
  1. HEPARIN SODIUM [Interacting]
     Active Substance: HEPARIN SODIUM
     Indication: Thrombosis
     Dosage: 60000 IU
  2. HEPARIN SODIUM [Interacting]
     Active Substance: HEPARIN SODIUM
     Dosage: 380000 IU OVER THE NEXT 2 HOURS
  3. ANDEXANET ALFA [Interacting]
     Active Substance: ANDEXANET ALFA
     Indication: Anticoagulant therapy
     Dosage: 400 MG AT A RATE OF 30 MG/MIN, FOLLOWED BY AN INFUSION OF 480 MG AT A RATE OF 4 MG/MIN OVER 120 MIN
     Route: 042

REACTIONS (2)
  - Heparin resistance [Recovered/Resolved]
  - Drug interaction [Unknown]
